FAERS Safety Report 16089445 (Version 1)
Quarter: 2019Q1

REPORT INFORMATION
  Report Type: Spontaneous
  Country: FR (occurrence: FR)
  Receive Date: 20190319
  Receipt Date: 20190319
  Transmission Date: 20190418
  Serious: Yes (Other)
  Sender: FDA-Public Use
  Company Number: FR-ELI_LILLY_AND_COMPANY-FR201903008535

PATIENT
  Age: 54 Year
  Sex: Female
  Weight: 60 kg

DRUGS (7)
  1. VALSARTAN. [Concomitant]
     Active Substance: VALSARTAN
     Dosage: UNK, UNKNOWN
     Route: 065
  2. DULOXETINE HYDROCHLORIDE. [Suspect]
     Active Substance: DULOXETINE HYDROCHLORIDE
     Indication: DEPRESSION
     Dosage: 120 MG, DAILY
     Route: 048
     Dates: start: 20161221, end: 20180627
  3. THERALENE [Concomitant]
     Active Substance: TRIMEPRAZINE
     Dosage: UNK, UNKNOWN
     Route: 065
  4. SERESTA [Concomitant]
     Active Substance: OXAZEPAM
     Dosage: UNK UNK, UNKNOWN
     Route: 065
  5. METFORMINE [METFORMIN] [Concomitant]
     Active Substance: METFORMIN HYDROCHLORIDE
     Dosage: UNK UNK, UNKNOWN
     Route: 065
  6. PANTOPRAZOLE [Concomitant]
     Active Substance: PANTOPRAZOLE
     Dosage: UNK, UNKNOWN
     Route: 065
  7. IMOVANE [Concomitant]
     Active Substance: ZOPICLONE
     Dosage: UNK, UNKNOWN
     Route: 065

REACTIONS (1)
  - Hepatitis [Not Recovered/Not Resolved]

NARRATIVE: CASE EVENT DATE: 20170809
